FAERS Safety Report 19932266 (Version 1)
Quarter: 2021Q4

REPORT INFORMATION
  Report Type: Spontaneous
  Country: US (occurrence: US)
  Receive Date: 20211007
  Receipt Date: 20211007
  Transmission Date: 20220303
  Serious: Yes (Death)
  Sender: FDA-Public Use
  Company Number: None

PATIENT
  Age: 81 Year
  Sex: Female
  Weight: 73 kg

DRUGS (4)
  1. TOCILIZUMAB [Suspect]
     Active Substance: TOCILIZUMAB
     Indication: COVID-19
     Dosage: ?          OTHER FREQUENCY:ONCE;
     Route: 042
     Dates: start: 20210920, end: 20210920
  2. TOCILIZUMAB [Suspect]
     Active Substance: TOCILIZUMAB
     Indication: COVID-19
     Dosage: ?          OTHER FREQUENCY:ONCE;
     Route: 042
     Dates: start: 20210920, end: 20210920
  3. DEXAMETHASONE [Concomitant]
     Active Substance: DEXAMETHASONE
     Dates: start: 20210920, end: 20210920
  4. DEXAMETHASONE [Concomitant]
     Active Substance: DEXAMETHASONE
     Dates: start: 20210924, end: 20210930

REACTIONS (14)
  - Pulmonary embolism [None]
  - Staphylococcal infection [None]
  - Incisional hernia [None]
  - Abdominal hernia [None]
  - Hypotension [None]
  - Leukocytosis [None]
  - Staphylococcus test positive [None]
  - Liver function test abnormal [None]
  - Hypoxia [None]
  - Staphylococcal infection [None]
  - Bronchial secretion retention [None]
  - COVID-19 pneumonia [None]
  - Septic shock [None]
  - Death [None]

NARRATIVE: CASE EVENT DATE: 20211005
